FAERS Safety Report 21386672 (Version 1)
Quarter: 2022Q3

REPORT INFORMATION
  Report Type: Spontaneous
  Country: FR (occurrence: FR)
  Receive Date: 20220928
  Receipt Date: 20220928
  Transmission Date: 20221027
  Serious: Yes (Other)
  Sender: FDA-Public Use
  Company Number: None

PATIENT
  Age: 31 Year
  Sex: Female
  Weight: 54 kg

DRUGS (5)
  1. TOVIAZ [Suspect]
     Active Substance: FESOTERODINE FUMARATE
     Indication: Pollakiuria
     Dosage: 1 DF, DAILY
     Route: 048
     Dates: start: 20220628, end: 20220721
  2. SUNOSI [Concomitant]
     Active Substance: SOLRIAMFETOL
     Dosage: UNK
  3. MODAFINIL [Concomitant]
     Active Substance: MODAFINIL
     Dosage: UNK
  4. DROSPIRENONE\ETHINYL ESTRADIOL [Concomitant]
     Active Substance: DROSPIRENONE\ETHINYL ESTRADIOL
     Dosage: UNK
  5. PAROXETINE HYDROCHLORIDE [Concomitant]
     Active Substance: PAROXETINE HYDROCHLORIDE
     Dosage: UNK

REACTIONS (3)
  - Fall [Recovering/Resolving]
  - Ataxia [Recovering/Resolving]
  - Muscular weakness [Recovering/Resolving]

NARRATIVE: CASE EVENT DATE: 20220702
